FAERS Safety Report 8544020-4 (Version None)
Quarter: 2012Q3

REPORT INFORMATION
  Report Type: 
  Country: None (occurrence: None)
  Receive Date: 20120727
  Receipt Date: 20120724
  Transmission Date: 20120928
  Serious: No
  Sender: FDA-Public Use
  Company Number: US-PFIZER INC-HQWYE017519AUG05

PATIENT
  Sex: Female
  Weight: 127 kg

DRUGS (7)
  1. EFFEXOR XR [Suspect]
     Dosage: 75.0 MG, 1X/DAY
     Route: 048
     Dates: start: 20050401, end: 20050601
  2. ZOCOR [Concomitant]
     Route: 065
  3. GLIPIZIDE [Concomitant]
     Route: 065
  4. EFFEXOR XR [Suspect]
     Dosage: 37.5 MG, 1X/DAY
     Route: 048
     Dates: start: 20050601, end: 20050816
  5. EFFEXOR XR [Suspect]
     Indication: MENOPAUSE
     Dosage: 150.0 MG, 1X/DAY
     Route: 048
     Dates: start: 20000101, end: 20050401
  6. EFFEXOR XR [Suspect]
     Dosage: UNK
     Route: 048
     Dates: start: 20000101
  7. ACTOS [Concomitant]
     Route: 065

REACTIONS (11)
  - FEELING ABNORMAL [None]
  - ACTIVITIES OF DAILY LIVING IMPAIRED [None]
  - CRYING [None]
  - DIZZINESS [None]
  - DRUG WITHDRAWAL SYNDROME [None]
  - HOT FLUSH [None]
  - VOMITING [None]
  - INSOMNIA [None]
  - NAUSEA [None]
  - DIARRHOEA [None]
  - NIGHTMARE [None]
